FAERS Safety Report 10149738 (Version 1)
Quarter: 2014Q2

REPORT INFORMATION
  Report Type: Spontaneous
  Country: GB (occurrence: GB)
  Receive Date: 20140502
  Receipt Date: 20140502
  Transmission Date: 20141212
  Serious: Yes (Hospitalization, Other)
  Sender: FDA-Public Use
  Company Number: GB-SA-2014SA052087

PATIENT
  Sex: Female

DRUGS (6)
  1. DRONEDARONE [Suspect]
     Indication: ATRIAL FIBRILLATION
     Route: 048
     Dates: end: 20140410
  2. AMLODIPINE [Concomitant]
     Route: 048
  3. BISOPROLOL [Concomitant]
  4. PAROXETINE [Concomitant]
  5. VALSARTAN [Concomitant]
  6. WARFARIN [Concomitant]

REACTIONS (4)
  - Liver function test abnormal [Recovering/Resolving]
  - Dizziness [Unknown]
  - Palpitations [Unknown]
  - Nausea [Unknown]
